FAERS Safety Report 7308595-5 (Version None)
Quarter: 2011Q1

REPORT INFORMATION
  Report Type: 
  Country: None (occurrence: None)
  Receive Date: 20110223
  Receipt Date: 20110221
  Transmission Date: 20110831
  Serious: Yes (Other)
  Sender: FDA-Public Use
  Company Number: US-PFIZER INC-2011037675

PATIENT
  Sex: Male
  Weight: 108.84 kg

DRUGS (4)
  1. KLONOPIN [Concomitant]
     Indication: PANIC ATTACK
     Dosage: 1 MG, 3X/DAY
  2. ZOLOFT [Suspect]
     Indication: DEPRESSION
     Dosage: UNK
  3. XANAX [Suspect]
     Indication: DEPRESSION
     Dosage: 6MG DAILY
     Route: 048
  4. XANAX [Suspect]
     Indication: PANIC ATTACK

REACTIONS (4)
  - BIPOLAR DISORDER [None]
  - EUPHORIC MOOD [None]
  - TREMOR [None]
  - ABNORMAL BEHAVIOUR [None]
